FAERS Safety Report 7728610-4 (Version None)
Quarter: 2011Q3

REPORT INFORMATION
  Report Type: 
  Country: None (occurrence: None)
  Receive Date: 20110831
  Receipt Date: 20110831
  Transmission Date: 20111222
  Serious: Yes (Other)
  Sender: FDA-Public Use
  Company Number: None

PATIENT
  Age: 45 Year
  Sex: Female

DRUGS (1)
  1. MELOXICAM [Suspect]
     Indication: CARPAL TUNNEL SYNDROME
     Dosage: 15 MG ONCE A DAY
     Route: 048
     Dates: start: 20110825, end: 20110825

REACTIONS (3)
  - HYPOAESTHESIA [None]
  - VIITH NERVE PARALYSIS [None]
  - DYSARTHRIA [None]
